FAERS Safety Report 15425240 (Version 9)
Quarter: 2019Q1

REPORT INFORMATION
  Report Type: Spontaneous
  Country: DE (occurrence: DE)
  Receive Date: 20180925
  Receipt Date: 20190122
  Transmission Date: 20190417
  Serious: Yes (Death, Other)
  Sender: FDA-Public Use
  Company Number: DE-PFIZER INC-2014357910

PATIENT
  Age: 79 Year
  Sex: Female
  Weight: 75 kg

DRUGS (23)
  1. ZYPREXA [Suspect]
     Active Substance: OLANZAPINE
     Indication: DEPRESSIVE SYMPTOM
     Dosage: UNK
     Route: 048
     Dates: start: 20130330
  2. CONIEL [Suspect]
     Active Substance: BENIDIPINE HYDROCHLORIDE
     Indication: HYPERTENSION
     Dosage: UNK
     Route: 048
  3. CYMBALTA [Suspect]
     Active Substance: DULOXETINE HYDROCHLORIDE
     Dosage: UNK
     Route: 065
  4. NEXIUM [Concomitant]
     Active Substance: ESOMEPRAZOLE MAGNESIUM
     Indication: GASTRITIS
     Dosage: 20 MG, UNK
     Route: 048
     Dates: start: 20141016, end: 20141111
  5. LIPITOR [Suspect]
     Active Substance: ATORVASTATIN CALCIUM
     Indication: HYPERLIPIDAEMIA
     Dosage: UNK
     Route: 048
  6. MYSLEE [Suspect]
     Active Substance: ZOLPIDEM TARTRATE
     Indication: DEPRESSIVE SYMPTOM
     Dosage: UNK
     Route: 048
     Dates: start: 20130330, end: 201304
  7. SEROQUEL [Concomitant]
     Active Substance: QUETIAPINE FUMARATE
     Dosage: UNK
     Route: 065
  8. MYSLEE [Suspect]
     Active Substance: ZOLPIDEM TARTRATE
     Dosage: UNK
     Route: 065
  9. ZYPREXA [Suspect]
     Active Substance: OLANZAPINE
     Dosage: UNK
     Route: 065
  10. ELIQUIS [Suspect]
     Active Substance: APIXABAN
     Indication: ATRIAL FIBRILLATION
     Dosage: UNK
     Route: 065
  11. LIPITOR [Suspect]
     Active Substance: ATORVASTATIN CALCIUM
     Dosage: UNK
     Route: 065
  12. ELIQUIS [Suspect]
     Active Substance: APIXABAN
     Indication: CEREBROVASCULAR ACCIDENT PROPHYLAXIS
     Dosage: 2.5 MG, UNK
     Route: 048
     Dates: start: 20141021, end: 20141023
  13. SIGMART [Suspect]
     Active Substance: NICORANDIL
     Indication: ANGINA PECTORIS
     Dosage: 240 MG, UNK
     Route: 048
  14. SIGMART [Suspect]
     Active Substance: NICORANDIL
     Dosage: UNK
     Route: 065
  15. CYMBALTA [Suspect]
     Active Substance: DULOXETINE HYDROCHLORIDE
     Indication: DEPRESSIVE SYMPTOM
     Dosage: 560 MG, UNK
     Route: 048
     Dates: start: 20130330
  16. TOREM /01036501/ [Concomitant]
     Active Substance: TORSEMIDE
     Indication: CARDIAC FAILURE
     Dosage: 10 MG, UNK
     Route: 048
     Dates: start: 20141010, end: 20141111
  17. SEROQUEL [Concomitant]
     Active Substance: QUETIAPINE FUMARATE
     Indication: CONDUCT DISORDER
     Dosage: 25 MG, UNK
     Route: 048
     Dates: start: 20141009, end: 20141021
  18. DEPAS /00749301/ [Concomitant]
     Active Substance: ETIZOLAM
     Dosage: UNK
     Route: 048
     Dates: start: 20130330
  19. GASTER [Suspect]
     Active Substance: FAMOTIDINE
     Dosage: 200 MG, QD
     Route: 048
     Dates: start: 20130422, end: 20130422
  20. DELIX /00885601/ [Concomitant]
     Active Substance: RAMIPRIL
     Indication: CARDIAC FAILURE
     Dosage: 2 MG, UNK
     Route: 048
     Dates: start: 20141009, end: 20141111
  21. GASTER [Suspect]
     Active Substance: FAMOTIDINE
     Dosage: 200 MG, UNK
     Route: 065
  22. VALPROAT [Suspect]
     Active Substance: VALPROATE SODIUM
     Dosage: 5600 MG, EVERY DAY
     Route: 048
     Dates: start: 20130422, end: 20130422
  23. CONIEL [Suspect]
     Active Substance: BENIDIPINE HYDROCHLORIDE
     Dosage: UNK
     Route: 065

REACTIONS (5)
  - Status epilepticus [Fatal]
  - Toxicity to various agents [Fatal]
  - Pneumonia [Fatal]
  - Off label use [Unknown]
  - Intentional overdose [Fatal]

NARRATIVE: CASE EVENT DATE: 20130422
